FAERS Safety Report 7125696-5 (Version None)
Quarter: 2010Q4

REPORT INFORMATION
  Report Type: 
  Country: None (occurrence: None)
  Receive Date: 20101129
  Receipt Date: 20101122
  Transmission Date: 20110411
  Serious: Yes (Other)
  Sender: FDA-Public Use
  Company Number: A0891478A

PATIENT
  Sex: Female

DRUGS (4)
  1. TYKERB [Suspect]
     Dosage: 1250MG PER DAY
     Route: 048
     Dates: start: 20100311, end: 20101023
  2. XELODA [Suspect]
     Route: 065
     Dates: end: 20101023
  3. OXYCONTIN [Concomitant]
     Route: 065
  4. PERCOCET [Concomitant]
     Route: 065

REACTIONS (1)
  - BREAST CANCER METASTATIC [None]
